FAERS Safety Report 25452626 (Version 2)
Quarter: 2025Q3

REPORT INFORMATION
  Report Type: Report from Study
  Country: JP (occurrence: JP)
  Receive Date: 20250618
  Receipt Date: 20250809
  Transmission Date: 20251021
  Serious: Yes (Other)
  Sender: ALEXION PHARMACEUTICALS
  Company Number: JP-ASTRAZENECA-202506GLO011646JP

PATIENT

DRUGS (2)
  1. OSIMERTINIB [Suspect]
     Active Substance: OSIMERTINIB
     Indication: Non-small cell lung cancer stage III
     Route: 065
  2. DURVALUMAB [Concomitant]
     Active Substance: DURVALUMAB
     Indication: Non-small cell lung cancer stage III
     Route: 065

REACTIONS (1)
  - Blood creatine phosphokinase increased [Unknown]
